FAERS Safety Report 6162079-9 (Version None)
Quarter: 2009Q2

REPORT INFORMATION
  Report Type: 
  Country: None (occurrence: None)
  Receive Date: 20090421
  Receipt Date: 20090413
  Transmission Date: 20091009
  Serious: Yes (Other)
  Sender: FDA-Public Use
  Company Number: US-GENENTECH-277157

PATIENT
  Sex: Female
  Weight: 55.4 kg

DRUGS (5)
  1. BLINDED RITUXIMAB [Suspect]
     Indication: ANTI-NEUTROPHIL CYTOPLASMIC ANTIBODY POSITIVE VASCULITIS
     Dosage: 555 MG, UNK
     Route: 042
     Dates: start: 20070419
  2. BLINDED RITUXIMAB [Suspect]
     Dosage: 544 MG, UNK
     Route: 042
     Dates: start: 20071018
  3. BLINDED RITUXIMAB [Suspect]
     Dosage: UNK
  4. RITUXAN [Suspect]
     Indication: ANTI-NEUTROPHIL CYTOPLASMIC ANTIBODY POSITIVE VASCULITIS
     Dosage: 551 MG, UNK
     Route: 042
     Dates: start: 20080924, end: 20081015
  5. CYCLOPHOSPHAMIDE [Suspect]
     Indication: ANTI-NEUTROPHIL CYTOPLASMIC ANTIBODY POSITIVE VASCULITIS
     Dosage: 200 MG, UNK
     Route: 048
     Dates: start: 20070420, end: 20080409

REACTIONS (1)
  - SQUAMOUS CELL CARCINOMA [None]
